FAERS Safety Report 9444981 (Version 1)
Quarter: 2013Q3

REPORT INFORMATION
  Report Type: Spontaneous
  Country: CH (occurrence: CH)
  Receive Date: 20130807
  Receipt Date: 20130807
  Transmission Date: 20140515
  Serious: Yes (Other)
  Sender: FDA-Public Use
  Company Number: CH-RANBAXY-2013R1-72052

PATIENT
  Age: 5 Month
  Sex: Male

DRUGS (3)
  1. HYDROCORTISONE [Suspect]
     Indication: PRODUCT USED FOR UNKNOWN INDICATION
     Dosage: 12 MG/KG/DAY
     Route: 065
  2. VIGABATRIN [Suspect]
     Indication: INFANTILE SPASMS
     Dosage: UNK
     Route: 065
  3. VIGABATRIN [Suspect]
     Indication: PRODUCT USED FOR UNKNOWN INDICATION
     Dosage: 150 MG/KG/DAY
     Route: 065

REACTIONS (4)
  - Cerebral atrophy [Not Recovered/Not Resolved]
  - Nuclear magnetic resonance imaging brain abnormal [Recovered/Resolved]
  - Encephalopathy [Recovered/Resolved]
  - Extrapyramidal disorder [Recovered/Resolved]
